FAERS Safety Report 15987945 (Version 1)
Quarter: 2019Q1

REPORT INFORMATION
  Report Type: Spontaneous
  Country: IN (occurrence: IN)
  Receive Date: 20190220
  Receipt Date: 20190220
  Transmission Date: 20190418
  Serious: Yes (Death, Life-Threatening, Other)
  Sender: FDA-Public Use
  Company Number: IN-BAXTER-2019BAX003498

PATIENT
  Age: 5 Year
  Sex: Male

DRUGS (5)
  1. ANTI-DIPHTHERIA SERUM [Concomitant]
     Indication: DIPHTHERIA
     Dosage: 1.2M UNITS
     Route: 065
     Dates: start: 20170816
  2. CRYSTALLINE PENICILLIN [Concomitant]
     Indication: DIPHTHERIA
     Dosage: 0.2 M U/KG/DAY Q 6 HOURLY AFTER NEGATIVE TEST DOSE
     Route: 042
     Dates: start: 20170816
  3. VANCOMYCIN [Concomitant]
     Active Substance: VANCOMYCIN
     Indication: PNEUMONIA
     Route: 065
     Dates: start: 20170816
  4. SEDOZ [Suspect]
     Active Substance: MIDAZOLAM HYDROCHLORIDE
     Indication: SEDATIVE THERAPY
     Route: 041
     Dates: start: 201708, end: 201708
  5. METRONIDAZOLE. [Concomitant]
     Active Substance: METRONIDAZOLE
     Indication: DIPHTHERIA
     Route: 042
     Dates: start: 20170816

REACTIONS (3)
  - Bradycardia [Fatal]
  - Extrasystoles [Fatal]
  - Cardiotoxicity [Fatal]
